FAERS Safety Report 9307105 (Version 1)
Quarter: 2013Q2

REPORT INFORMATION
  Report Type: Spontaneous
  Country: US (occurrence: US)
  Receive Date: 20130524
  Receipt Date: 20130524
  Transmission Date: 20140414
  Serious: Yes (Other)
  Sender: FDA-Public Use
  Company Number: US-009507513-1305USA010922

PATIENT
  Age: 43 Year
  Sex: Female

DRUGS (4)
  1. SINGULAIR [Suspect]
     Route: 048
  2. ZYRTEC [Suspect]
  3. NEURONTIN [Suspect]
  4. PROVENTIL HFA [Concomitant]
     Indication: BIPOLAR DISORDER

REACTIONS (15)
  - Weight increased [Unknown]
  - Angioedema [Unknown]
  - Urticaria chronic [Unknown]
  - Urticaria [Unknown]
  - Upper-airway cough syndrome [Unknown]
  - Swelling [Unknown]
  - Skin disorder [Unknown]
  - Scratch [Unknown]
  - Rhinitis perennial [Unknown]
  - Respiratory disorder [Unknown]
  - Nasal discomfort [Unknown]
  - Insomnia [Unknown]
  - Eye pruritus [Unknown]
  - Dysphonia [Unknown]
  - Cough [Unknown]
